FAERS Safety Report 19609923 (Version 3)
Quarter: 2021Q3

REPORT INFORMATION
  Report Type: Spontaneous
  Country: US (occurrence: US)
  Receive Date: 20210726
  Receipt Date: 20210910
  Transmission Date: 20211014
  Serious: Yes (Other)
  Sender: FDA-Public Use
  Company Number: US-AMNEAL PHARMACEUTICALS-2021-AMRX-02835

PATIENT
  Age: 63 Year
  Sex: Male
  Weight: 91 kg

DRUGS (2)
  1. ADRENACLICK [Suspect]
     Active Substance: EPINEPHRINE
     Indication: ALLERGY TO ARTHROPOD STING
     Dosage: UNK
     Route: 030
     Dates: start: 20210712
  2. ADRENACLICK [Suspect]
     Active Substance: EPINEPHRINE
     Indication: ANAPHYLACTIC SHOCK

REACTIONS (3)
  - Device failure [Unknown]
  - Loss of consciousness [Unknown]
  - Expired device used [Unknown]

NARRATIVE: CASE EVENT DATE: 20210712
